FAERS Safety Report 4501084-2 (Version None)
Quarter: 2004Q4

REPORT INFORMATION
  Report Type: 
  Country: None (occurrence: None)
  Receive Date: 20041110
  Receipt Date: 20041029
  Transmission Date: 20050328
  Serious: Yes (Hospitalization, Other)
  Sender: FDA-Public Use
  Company Number: 2004242242US

PATIENT
  Sex: Male
  Weight: 78 kg

DRUGS (5)
  1. BEXTRA [Suspect]
     Dosage: SEE IMAGE
     Route: 048
     Dates: end: 20040701
  2. NORVASC [Concomitant]
  3. PREVACID [Concomitant]
  4. ASPIRIN [Concomitant]
  5. MULTIVITAMIN [Concomitant]

REACTIONS (13)
  - ARTHRALGIA [None]
  - BLOOD PRESSURE IMMEASURABLE [None]
  - CALCINOSIS [None]
  - DRUG INEFFECTIVE [None]
  - EXOSTOSIS [None]
  - HYPOTHYROIDISM [None]
  - INSOMNIA [None]
  - NECK PAIN [None]
  - PAIN EXACERBATED [None]
  - PERIPHERAL OCCLUSIVE DISEASE [None]
  - PULSE ABSENT [None]
  - ROTATOR CUFF SYNDROME [None]
  - SKIN DISCOLOURATION [None]
